FAERS Safety Report 6495112-5 (Version None)
Quarter: 2009Q4

REPORT INFORMATION
  Report Type: 
  Country: None (occurrence: None)
  Receive Date: 20091214
  Receipt Date: 20090501
  Transmission Date: 20100525
  Serious: No
  Sender: FDA-Public Use
  Company Number: US-BRISTOL-MYERS SQUIBB COMPANY-14609424

PATIENT
  Age: 4 Decade
  Sex: Female

DRUGS (3)
  1. ABILIFY [Suspect]
     Indication: DEPRESSION
     Dosage: TAKEN 5MG 2 MONTHS AGO
  2. SEROQUEL [Suspect]
  3. ANTIDEPRESSANT [Concomitant]

REACTIONS (1)
  - TREMOR [None]
